FAERS Safety Report 24530238 (Version 2)
Quarter: 2024Q4

REPORT INFORMATION
  Report Type: Spontaneous
  Country: FR (occurrence: FR)
  Receive Date: 20241021
  Receipt Date: 20241024
  Transmission Date: 20250115
  Serious: Yes (Other)
  Sender: NOVARTIS
  Company Number: FR-002147023-NVSC2024FR204498

PATIENT

DRUGS (1)
  1. ELTROMBOPAG OLAMINE [Suspect]
     Active Substance: ELTROMBOPAG OLAMINE
     Indication: Immune thrombocytopenia
     Dosage: UNK
     Route: 065

REACTIONS (5)
  - Renal tubular necrosis [Unknown]
  - Nephropathy toxic [Unknown]
  - Renal injury [Unknown]
  - Glomerular filtration rate decreased [Unknown]
  - Glomerular filtration rate abnormal [Unknown]
